FAERS Safety Report 10081055 (Version 1)
Quarter: 2014Q2

REPORT INFORMATION
  Report Type: Other
  Country: US (occurrence: US)
  Receive Date: 20140416
  Receipt Date: 20140416
  Transmission Date: 20141212
  Serious: No
  Sender: FDA-Public Use
  Company Number: PHEH2014US007278

PATIENT
  Sex: 0

DRUGS (1)
  1. FEMARA [Suspect]
     Dosage: UNK UKN, UNK

REACTIONS (2)
  - No adverse event [Unknown]
  - Surgery [None]
